FAERS Safety Report 7076591-1 (Version None)
Quarter: 2010Q4

REPORT INFORMATION
  Report Type: 
  Country: None (occurrence: None)
  Receive Date: 20101101
  Receipt Date: 20101020
  Transmission Date: 20110411
  Serious: Yes (Other)
  Sender: FDA-Public Use
  Company Number: FR-PFIZER INC-2010133225

PATIENT
  Sex: Male

DRUGS (1)
  1. LYRICA [Suspect]
     Indication: PARAESTHESIA
     Dosage: 50 MG, 2X/DAY
     Dates: start: 20081001

REACTIONS (2)
  - PAIN [None]
  - PERIPHERAL COLDNESS [None]
